FAERS Safety Report 10630265 (Version 1)
Quarter: 2014Q4

REPORT INFORMATION
  Report Type: Spontaneous
  Country: US (occurrence: US)
  Receive Date: 20141205
  Receipt Date: 20141205
  Transmission Date: 20150529
  Serious: No
  Sender: FDA-Public Use
  Company Number: US-BRISTOL-MYERS SQUIBB COMPANY-21591771

PATIENT
  Age: 32 Year
  Sex: Female

DRUGS (3)
  1. ABILIFY [Suspect]
     Active Substance: ARIPIPRAZOLE
     Indication: SCHIZOPHRENIA
     Dosage: INCREASED TO 10MG
     Route: 048
     Dates: start: 201410
  2. ABILIFY [Suspect]
     Active Substance: ARIPIPRAZOLE
     Indication: BIPOLAR I DISORDER
     Dosage: INCREASED TO 10MG
     Route: 048
     Dates: start: 201410
  3. ABILIFY [Suspect]
     Active Substance: ARIPIPRAZOLE
     Indication: BIPOLAR DISORDER
     Dosage: INCREASED TO 10MG
     Route: 048
     Dates: start: 201410

REACTIONS (8)
  - Restlessness [Unknown]
  - Drug ineffective [Unknown]
  - Insomnia [Unknown]
  - Fatigue [Unknown]
  - Condition aggravated [Unknown]
  - Somnolence [Unknown]
  - Irritability [Unknown]
  - Muscle twitching [Unknown]

NARRATIVE: CASE EVENT DATE: 201410
